FAERS Safety Report 13541298 (Version 1)
Quarter: 2017Q2

REPORT INFORMATION
  Report Type: Spontaneous
  Country: US (occurrence: US)
  Receive Date: 20170512
  Receipt Date: 20170512
  Transmission Date: 20170830
  Serious: Yes (Other)
  Sender: FDA-Public Use
  Company Number: US-BAYER-2017-084339

PATIENT
  Age: 23 Year
  Sex: Female

DRUGS (4)
  1. YAZ [Suspect]
     Active Substance: DROSPIRENONE\ETHINYL ESTRADIOL
     Indication: DRUG LEVEL
     Dosage: 1 DF, QD
     Route: 048
     Dates: start: 20160927
  2. YAZ [Suspect]
     Active Substance: DROSPIRENONE\ETHINYL ESTRADIOL
     Indication: DRUG LEVEL
     Dosage: 1 DF, QD
     Route: 048
     Dates: start: 20161003
  3. YAZ [Suspect]
     Active Substance: DROSPIRENONE\ETHINYL ESTRADIOL
     Indication: DRUG LEVEL
     Dosage: 1 DF, QD
     Route: 048
     Dates: start: 20161028
  4. YAZ [Suspect]
     Active Substance: DROSPIRENONE\ETHINYL ESTRADIOL
     Indication: DRUG LEVEL
     Dosage: 1 DF, QD
     Route: 048
     Dates: start: 20161021

REACTIONS (2)
  - Pregnancy on oral contraceptive [None]
  - Off label use [None]
